FAERS Safety Report 20657110 (Version 1)
Quarter: 2022Q1

REPORT INFORMATION
  Report Type: Spontaneous
  Country: AU (occurrence: AU)
  Receive Date: 20220331
  Receipt Date: 20220331
  Transmission Date: 20220423
  Serious: Yes (Other)
  Sender: FDA-Public Use
  Company Number: AU-ALKEM LABORATORIES LIMITED-AU-ALKEM-2022-02543

PATIENT
  Age: 40 Year
  Sex: Male

DRUGS (5)
  1. AMLODIPINE BESYLATE [Suspect]
     Active Substance: AMLODIPINE BESYLATE
     Indication: Product used for unknown indication
     Dosage: UNK
     Route: 065
  2. IVABRADINE HYDROCHLORIDE [Suspect]
     Active Substance: IVABRADINE HYDROCHLORIDE
     Indication: Product used for unknown indication
     Dosage: UNK
     Route: 065
  3. CARVEDILOL HYDROCHLORIDE [Suspect]
     Active Substance: CARVEDILOL HYDROCHLORIDE
     Indication: Product used for unknown indication
     Dosage: UNK
     Route: 065
  4. FUROSEMIDE [Suspect]
     Active Substance: FUROSEMIDE
     Indication: Product used for unknown indication
     Dosage: UNK
     Route: 065
  5. PERINDOPRIL [Suspect]
     Active Substance: PERINDOPRIL
     Indication: Product used for unknown indication
     Dosage: UNK
     Route: 065

REACTIONS (12)
  - Congestive cardiomyopathy [Unknown]
  - Pulmonary oedema [Unknown]
  - Anxiety [Unknown]
  - Blister [Unknown]
  - Cardiomegaly [Unknown]
  - Chest discomfort [Unknown]
  - Depression [Unknown]
  - Dizziness postural [Unknown]
  - Heart rate increased [Unknown]
  - Oedema peripheral [Unknown]
  - Panic attack [Unknown]
  - Rash macular [Unknown]
